FAERS Safety Report 7097006-3 (Version None)
Quarter: 2010Q4

REPORT INFORMATION
  Report Type: 
  Country: None (occurrence: None)
  Receive Date: 20101111
  Receipt Date: 20100816
  Transmission Date: 20110411
  Serious: Yes (Hospitalization)
  Sender: FDA-Public Use
  Company Number: US-KINGPHARMUSA00001-K201000273

PATIENT
  Age: 50 Year
  Sex: Male

DRUGS (2)
  1. EMBEDA [Suspect]
     Indication: BACK PAIN
     Dosage: 80 MG, TWICE
  2. EMBEDA [Suspect]
     Indication: ARTHRALGIA

REACTIONS (10)
  - AGITATION [None]
  - CHILLS [None]
  - DRUG INEFFECTIVE [None]
  - DRUG WITHDRAWAL SYNDROME [None]
  - DYSKINESIA [None]
  - HYPERHIDROSIS [None]
  - INTENTIONAL DRUG MISUSE [None]
  - MALAISE [None]
  - MYDRIASIS [None]
  - PAIN [None]
